FAERS Safety Report 5883262-3 (Version None)
Quarter: 2008Q3

REPORT INFORMATION
  Report Type: 
  Country: None (occurrence: None)
  Receive Date: 20080915
  Receipt Date: 20080910
  Transmission Date: 20090109
  Serious: Yes (Hospitalization)
  Sender: FDA-Public Use
  Company Number: FR-BRISTOL-MYERS SQUIBB COMPANY-14331631

PATIENT
  Age: 66 Year
  Sex: Female

DRUGS (4)
  1. COAPROVEL TABS 300MG/ 25MG [Suspect]
     Dosage: 1DF=300MG/25MG
     Dates: end: 20080728
  2. TERALITHE [Suspect]
     Dates: end: 20080727
  3. ARTANE [Suspect]
     Dates: end: 20080727
  4. LOXAPINE HCL [Suspect]
     Dates: end: 20080727

REACTIONS (2)
  - EXTRAPYRAMIDAL DISORDER [None]
  - THERAPEUTIC AGENT TOXICITY [None]
